FAERS Safety Report 7316093-8 (Version None)
Quarter: 2011Q1

REPORT INFORMATION
  Report Type: 
  Country: None (occurrence: None)
  Receive Date: 20110225
  Receipt Date: 20110215
  Transmission Date: 20110831
  Serious: Yes (Hospitalization, Other)
  Sender: FDA-Public Use
  Company Number: US-ELI_LILLY_AND_COMPANY-US201102004910

PATIENT
  Sex: Female
  Weight: 43.991 kg

DRUGS (15)
  1. PLAVIX [Concomitant]
  2. MEGESTROL ACETATE [Concomitant]
  3. ADVAIR DISKUS 100/50 [Concomitant]
  4. FORTEO [Suspect]
     Indication: OSTEOPOROSIS
     Dosage: 20 UG, DAILY (1/D)
     Dates: start: 20081201, end: 20101201
  5. LOVASTATIN [Concomitant]
  6. CALTRATE + D [Concomitant]
  7. FOSAMAX [Concomitant]
  8. TRAMADOL [Concomitant]
  9. SPIRIVA [Concomitant]
  10. ALBUTEROL [Concomitant]
  11. VITAMIN B-12 [Concomitant]
  12. ALBUTEROL [Concomitant]
     Dosage: UNK, AS NEEDED
  13. FAMOTIDINE [Concomitant]
  14. PREDNISONE [Concomitant]
     Dosage: 3 UG, DAILY (1/D)
  15. CENTRUM [Concomitant]

REACTIONS (10)
  - ASTHENIA [None]
  - ACTIVITIES OF DAILY LIVING IMPAIRED [None]
  - PNEUMONIA [None]
  - FATIGUE [None]
  - ORAL PAIN [None]
  - WEIGHT DECREASED [None]
  - WHITE BLOOD CELL COUNT INCREASED [None]
  - MYELODYSPLASTIC SYNDROME [None]
  - VITAMIN D DEFICIENCY [None]
  - WEIGHT FLUCTUATION [None]
